FAERS Safety Report 24308995 (Version 2)
Quarter: 2025Q1

REPORT INFORMATION
  Report Type: Report from Study
  Country: US (occurrence: US)
  Receive Date: 20240911
  Receipt Date: 20250305
  Transmission Date: 20250408
  Serious: No
  Sender: SUNOVION
  Company Number: US-SUMITOMO PHARMA SWITZERLAND GMBH-2024SPA001583

PATIENT

DRUGS (4)
  1. ORGOVYX [Suspect]
     Active Substance: RELUGOLIX
     Indication: Prostate cancer
     Route: 048
     Dates: start: 20240801, end: 20240801
  2. ORGOVYX [Suspect]
     Active Substance: RELUGOLIX
     Dosage: 120 MG, QD
     Route: 048
     Dates: start: 20240802
  3. METOPROLOL [Suspect]
     Active Substance: METOPROLOL
     Route: 065
  4. NUBEQA [Concomitant]
     Active Substance: DAROLUTAMIDE

REACTIONS (4)
  - Pulse abnormal [Unknown]
  - Lacrimation increased [Unknown]
  - Weight increased [Unknown]
  - Hypertension [Unknown]

NARRATIVE: CASE EVENT DATE: 20240801
